FAERS Safety Report 17000375 (Version 2)
Quarter: 2019Q4

REPORT INFORMATION
  Report Type: Report from Study
  Country: None (occurrence: US)
  Receive Date: 20191106
  Receipt Date: 20191114
  Transmission Date: 20200122
  Serious: Yes (Other)
  Sender: FDA-Public Use
  Company Number: US-ABBVIE-19P-163-2990453-00

PATIENT
  Age: 29 Year
  Sex: Female

DRUGS (1)
  1. SKYRIZI [Suspect]
     Active Substance: RISANKIZUMAB-RZAA
     Indication: PSORIASIS
     Route: 058
     Dates: start: 201906

REACTIONS (10)
  - Bacterial vulvovaginitis [Unknown]
  - Ear infection [Recovered/Resolved]
  - Sinusitis [Recovered/Resolved]
  - Pharyngitis streptococcal [Recovered/Resolved]
  - Vertigo [Recovered/Resolved]
  - Ovarian cyst [Not Recovered/Not Resolved]
  - Gastroenteritis viral [Recovered/Resolved]
  - Amenorrhoea [Recovered/Resolved]
  - Stress [Recovered/Resolved]
  - Splenomegaly [Recovering/Resolving]

NARRATIVE: CASE EVENT DATE: 201907
